FAERS Safety Report 16539059 (Version 4)
Quarter: 2020Q1

REPORT INFORMATION
  Report Type: Report from Study
  Country: DE (occurrence: DE)
  Receive Date: 20190708
  Receipt Date: 20200109
  Transmission Date: 20200409
  Serious: Yes (Hospitalization, Other)
  Sender: FDA-Public Use
  Company Number: PHHY2017DE182120

PATIENT
  Sex: Female

DRUGS (2)
  1. GILENYA [Suspect]
     Active Substance: FINGOLIMOD HYDROCHLORIDE
     Indication: MULTIPLE SCLEROSIS
     Dosage: UNK, QD
     Route: 048
     Dates: start: 20141013
  2. PREDNISOLUT [Concomitant]
     Active Substance: PREDNISOLONE
     Indication: MULTIPLE SCLEROSIS RELAPSE
     Dosage: UNK
     Route: 065
     Dates: start: 20150409, end: 20150411

REACTIONS (10)
  - Paraplegia [Unknown]
  - Headache [Unknown]
  - Fine motor skill dysfunction [Unknown]
  - Fatigue [Unknown]
  - Ataxia [Unknown]
  - Paraparesis [Unknown]
  - Memory impairment [Unknown]
  - Bladder dysfunction [Unknown]
  - Muscle spasms [Unknown]
  - Hypoaesthesia [Unknown]

NARRATIVE: CASE EVENT DATE: 20170112
